FAERS Safety Report 6736936-6 (Version None)
Quarter: 2010Q2

REPORT INFORMATION
  Report Type: 
  Country: None (occurrence: None)
  Receive Date: 20100521
  Receipt Date: 20100518
  Transmission Date: 20101027
  Serious: Yes (Other)
  Sender: FDA-Public Use
  Company Number: US-ABBOTT-10P-163-0622112-00

PATIENT
  Sex: Female
  Weight: 50.848 kg

DRUGS (9)
  1. HUMIRA [Suspect]
     Indication: CROHN'S DISEASE
     Route: 058
     Dates: start: 20080401
  2. HUMIRA [Suspect]
     Dates: start: 20091226, end: 20100309
  3. MULTI-VITAMINS [Concomitant]
     Indication: VITAMIN SUPPLEMENTATION
     Route: 048
     Dates: start: 20100114, end: 20100309
  4. ULTRAM [Concomitant]
     Indication: CROHN'S DISEASE
     Route: 048
     Dates: start: 20091226, end: 20100119
  5. ROLAIDS SOFT CHEWS [Concomitant]
     Indication: DYSPEPSIA
     Route: 048
     Dates: start: 20100118, end: 20100118
  6. TYLENOL (CAPLET) [Concomitant]
     Indication: HEADACHE
     Route: 048
     Dates: start: 20091226, end: 20100116
  7. CALCIUM [Concomitant]
     Indication: DRUG USE FOR UNKNOWN INDICATION
     Dosage: 1-2 TIMES
     Route: 048
     Dates: start: 20100101, end: 20100309
  8. PROMETHAZINE [Concomitant]
     Indication: NAUSEA
     Route: 048
     Dates: start: 20100102, end: 20100220
  9. UNISOM [Concomitant]
     Indication: NAUSEA
     Route: 048
     Dates: start: 20100102, end: 20100220

REACTIONS (2)
  - ABORTION SPONTANEOUS [None]
  - CHOKING SENSATION [None]
